FAERS Safety Report 9280247 (Version 1)
Quarter: 2013Q2

REPORT INFORMATION
  Report Type: Report from Study
  Country: CZ (occurrence: CZ)
  Receive Date: 20130509
  Receipt Date: 20130509
  Transmission Date: 20140414
  Serious: Yes (Hospitalization)
  Sender: FDA-Public Use
  Company Number: CZ-JNJFOC-20130500605

PATIENT
  Age: 59 Year
  Sex: Male

DRUGS (6)
  1. REMICADE [Suspect]
     Indication: PSORIATIC ARTHROPATHY
     Route: 042
     Dates: start: 20091110
  2. ANOPYRIN [Concomitant]
     Route: 065
  3. TROMBEX [Concomitant]
     Route: 065
  4. TORVACARD [Concomitant]
     Route: 065
  5. EGILOK [Concomitant]
     Route: 065
  6. TRITACE [Concomitant]
     Route: 065

REACTIONS (1)
  - Myocardial infarction [Recovered/Resolved]
